FAERS Safety Report 8758751 (Version 2)
Quarter: 2012Q4

REPORT INFORMATION
  Report Type: 
  Country: US (occurrence: US)
  Receive Date: 20120829
  Receipt Date: 20121115
  Transmission Date: 20130627
  Serious: Yes (Hospitalization)
  Sender: FDA-Public Use
  Company Number: US-BAYER-2012-086846

PATIENT
  Age: 20 Year
  Sex: Female
  Weight: 53.06 kg

DRUGS (4)
  1. YAZ [Suspect]
     Indication: CONTRACEPTION
     Dosage: UNK
     Dates: start: 200708, end: 201001
  2. YAZ [Suspect]
     Indication: MENSTRUAL CYCLE MANAGEMENT
  3. PREDNISONE [Concomitant]
     Dosage: 10 mg, UNK
     Dates: start: 20080128, end: 20080201
  4. HYDROCODONE W/PARACETAMOL [Concomitant]
     Dosage: 5/500
     Dates: start: 20080127, end: 20080202

REACTIONS (5)
  - Deep vein thrombosis [None]
  - Pelvic venous thrombosis [None]
  - Thrombosis [None]
  - Oedema peripheral [None]
  - Limb discomfort [None]
